FAERS Safety Report 18521992 (Version 1)
Quarter: 2020Q4

REPORT INFORMATION
  Report Type: Spontaneous
  Country: HR (occurrence: HR)
  Receive Date: 20201119
  Receipt Date: 20201119
  Transmission Date: 20210114
  Serious: Yes (Other)
  Sender: FDA-Public Use
  Company Number: HR-TEVA-2020-HR-1849513

PATIENT
  Sex: Male

DRUGS (2)
  1. RISSET [Suspect]
     Active Substance: RISPERIDONE
     Dosage: UNKNOWN QUANTITY
     Route: 048
     Dates: start: 20201003, end: 20201003
  2. LEPONEX [Suspect]
     Active Substance: CLOZAPINE
     Dosage: ALLEGEDLY DRANK THE WHOLE BOX (FOUND 5 EMPTY BLISTERS), UNIT DOSE 5000MG
     Route: 048
     Dates: start: 20201003, end: 20201003

REACTIONS (4)
  - Intentional overdose [Unknown]
  - Suicide attempt [Unknown]
  - Loss of consciousness [Unknown]
  - Somnolence [Unknown]

NARRATIVE: CASE EVENT DATE: 20201003
